FAERS Safety Report 8532737-7 (Version None)
Quarter: 2012Q3

REPORT INFORMATION
  Report Type: 
  Country: None (occurrence: None)
  Receive Date: 20120724
  Receipt Date: 20120717
  Transmission Date: 20120928
  Serious: Yes (Other)
  Sender: FDA-Public Use
  Company Number: PHHY2011CA42720

PATIENT
  Sex: Female

DRUGS (9)
  1. NAPROXE [Concomitant]
     Dosage: 2-3 TABS
     Route: 048
  2. HORMONES [Concomitant]
  3. ZOLEDRONOC ACID [Suspect]
     Indication: OSTEOPOROSIS
     Dosage: 5 MG, UNK
     Route: 042
     Dates: start: 20100624
  4. ZOLEDRONOC ACID [Suspect]
     Dosage: 5 MG, UNK
     Route: 042
     Dates: start: 20120717
  5. ZOLEDRONOC ACID [Suspect]
     Dosage: 5 MG, UNK
     Route: 042
     Dates: start: 20110622
  6. CALCIUM [Concomitant]
  7. VITAMIN D [Concomitant]
  8. METHOTREXATE [Concomitant]
     Dosage: 20 MG, WEEKLY
     Route: 048
  9. RAMIPRIL [Concomitant]
     Dosage: 1 TAB
     Route: 048

REACTIONS (9)
  - HAEMOGLOBIN DECREASED [None]
  - PLATELET COUNT INCREASED [None]
  - RED CELL DISTRIBUTION WIDTH INCREASED [None]
  - URINARY TRACT INFECTION [None]
  - SEPSIS [None]
  - MEAN CELL HAEMOGLOBIN DECREASED [None]
  - MEAN CELL VOLUME DECREASED [None]
  - MONOCYTE COUNT INCREASED [None]
  - BLOOD CREATININE DECREASED [None]
